FAERS Safety Report 8335236-0 (Version None)
Quarter: 2012Q2

REPORT INFORMATION
  Report Type: 
  Country: None (occurrence: None)
  Receive Date: 20120503
  Receipt Date: 20120420
  Transmission Date: 20120825
  Serious: Yes (Hospitalization, Other)
  Sender: FDA-Public Use
  Company Number: US-MYLANLABS-2009AC000285

PATIENT
  Age: 79 Year
  Sex: Male
  Weight: 75.3 kg

DRUGS (38)
  1. DIGOXIN [Suspect]
     Route: 048
     Dates: start: 20050601, end: 20090116
  2. LEVOTHYROXINE SODIUM [Concomitant]
  3. LISINOPRIL [Concomitant]
  4. ALDACTONE [Concomitant]
  5. DIOVAN [Concomitant]
  6. TOPROL-XL [Concomitant]
  7. IMDUR [Concomitant]
  8. VYTORIN [Concomitant]
  9. TRAZODONE HCL [Concomitant]
  10. ISOSORBIDE DINITRATE [Concomitant]
  11. GLIPIZIDE [Concomitant]
  12. AMIODARONE HCL [Concomitant]
  13. COUMADIN [Concomitant]
  14. PROTONIX [Concomitant]
  15. MINOCYCLINE HCL [Concomitant]
  16. LASIX [Concomitant]
  17. AMITRIPTYLINE HCL [Concomitant]
  18. CLONAZEPAM [Concomitant]
  19. ZOLPIDEM [Concomitant]
  20. PRINIVIL [Concomitant]
  21. ALLOPURINOL [Concomitant]
  22. HYDROXYZINE PAM [Concomitant]
  23. COUMADIN [Concomitant]
  24. PROMETHAZINE - CODEINE /01129901/ [Concomitant]
  25. SPIRONOLACTONE [Concomitant]
  26. METHYLPREDNISOLONE [Concomitant]
  27. ASPIRIN [Concomitant]
  28. CEPHALEXIN [Concomitant]
  29. AMBIEN [Concomitant]
  30. ALPRAZOLAM [Concomitant]
  31. SULFAMETHOXAZOLE + TRIMETHOPRIM [Concomitant]
  32. SYNTHROID [Concomitant]
  33. RANITIDINE [Concomitant]
  34. REGLAN [Concomitant]
  35. POTASSIUM CHLORIDE [Concomitant]
  36. XANAX [Concomitant]
  37. FUROSEMIDE [Concomitant]
  38. WARFARIN SODIUM [Concomitant]

REACTIONS (117)
  - ASTHENIA [None]
  - DIARRHOEA [None]
  - ATAXIA [None]
  - CHEST PAIN [None]
  - INCREASED TENDENCY TO BRUISE [None]
  - ARRHYTHMIA [None]
  - ATRIAL TACHYCARDIA [None]
  - CARDIOVERSION [None]
  - CEREBRAL ATROPHY [None]
  - CHILLS [None]
  - COMPUTERISED TOMOGRAM ABDOMEN ABNORMAL [None]
  - EXERCISE TOLERANCE DECREASED [None]
  - FLUSHING [None]
  - INSOMNIA [None]
  - SUPRAVENTRICULAR EXTRASYSTOLES [None]
  - VOMITING [None]
  - DYSPEPSIA [None]
  - FAILURE TO THRIVE [None]
  - CONFUSIONAL STATE [None]
  - EJECTION FRACTION DECREASED [None]
  - HAEMORRHAGIC DIATHESIS [None]
  - ELECTROLYTE IMBALANCE [None]
  - TOXICITY TO VARIOUS AGENTS [None]
  - CARDIAC MURMUR [None]
  - CARDIAC STRESS TEST ABNORMAL [None]
  - CATHETERISATION CARDIAC ABNORMAL [None]
  - CORONARY ANGIOPLASTY [None]
  - DYSURIA [None]
  - HYPOKALAEMIA [None]
  - MUSCULOSKELETAL CHEST PAIN [None]
  - UPPER RESPIRATORY TRACT INFECTION [None]
  - ECONOMIC PROBLEM [None]
  - HAEMORRHAGE [None]
  - DEHYDRATION [None]
  - ATELECTASIS [None]
  - BUNDLE BRANCH BLOCK LEFT [None]
  - GOUT [None]
  - INCISION SITE COMPLICATION [None]
  - ATRIAL FLUTTER [None]
  - ANAEMIA [None]
  - DEVICE PACING ISSUE [None]
  - COMPUTERISED TOMOGRAM ABNORMAL [None]
  - SOMNOLENCE [None]
  - ILL-DEFINED DISORDER [None]
  - DIZZINESS [None]
  - ISCHAEMIC CARDIOMYOPATHY [None]
  - BUNDLE BRANCH BLOCK RIGHT [None]
  - DILATATION VENTRICULAR [None]
  - DYSLIPIDAEMIA [None]
  - ELECTROCARDIOGRAM PR SHORTENED [None]
  - MITRAL VALVE INCOMPETENCE [None]
  - CHRONIC OBSTRUCTIVE PULMONARY DISEASE [None]
  - ECHOCARDIOGRAM ABNORMAL [None]
  - NECK PAIN [None]
  - PALLOR [None]
  - RALES [None]
  - RENAL FAILURE [None]
  - WEIGHT INCREASED [None]
  - HYPOTHYROIDISM [None]
  - MENTAL STATUS CHANGES [None]
  - CARDIOMEGALY [None]
  - COUGH [None]
  - HYPOTENSION [None]
  - ILEUS [None]
  - PLEURAL EFFUSION [None]
  - ARTHRALGIA [None]
  - FATIGUE [None]
  - GASTROOESOPHAGEAL REFLUX DISEASE [None]
  - HEADACHE [None]
  - HYPERHIDROSIS [None]
  - LABORATORY TEST ABNORMAL [None]
  - MYALGIA [None]
  - PALPITATIONS [None]
  - EARLY SATIETY [None]
  - ATRIAL FIBRILLATION [None]
  - CARDIOMYOPATHY [None]
  - ATRIOVENTRICULAR BLOCK COMPLETE [None]
  - DEVICE MALFUNCTION [None]
  - PARAESTHESIA [None]
  - VENTRICULAR EXTRASYSTOLES [None]
  - VENTRICULAR TACHYCARDIA [None]
  - BURSITIS [None]
  - DIVERTICULUM [None]
  - DYSPHAGIA [None]
  - OSTEOARTHRITIS [None]
  - URINARY TRACT INFECTION [None]
  - VERTIGO [None]
  - VESTIBULAR DISORDER [None]
  - INJURY [None]
  - HYPONATRAEMIA [None]
  - OVERWEIGHT [None]
  - SPINAL OSTEOARTHRITIS [None]
  - TACHYCARDIA [None]
  - CHEST X-RAY ABNORMAL [None]
  - PAIN IN EXTREMITY [None]
  - NAUSEA [None]
  - DECREASED APPETITE [None]
  - IMPLANTABLE DEFIBRILLATOR INSERTION [None]
  - CARDIAC FAILURE CONGESTIVE [None]
  - HEART RATE IRREGULAR [None]
  - INCISION SITE HAEMORRHAGE [None]
  - LEFT VENTRICULAR DYSFUNCTION [None]
  - LEFT VENTRICULAR HYPERTROPHY [None]
  - PYREXIA [None]
  - ABDOMINAL DISCOMFORT [None]
  - TEMPERATURE INTOLERANCE [None]
  - ANGINA PECTORIS [None]
  - CARDIAC VALVE DISEASE [None]
  - PULMONARY HYPERTENSION [None]
  - ABDOMINAL PAIN [None]
  - BACK PAIN [None]
  - DYSPNOEA EXERTIONAL [None]
  - HYPERGLYCAEMIA [None]
  - JOINT SWELLING [None]
  - SKIN TURGOR DECREASED [None]
  - VARICES OESOPHAGEAL [None]
  - PRODUCTIVE COUGH [None]
